FAERS Safety Report 4335607-3 (Version None)
Quarter: 2004Q2

REPORT INFORMATION
  Report Type: 
  Country: None (occurrence: None)
  Receive Date: 20040406
  Receipt Date: 20040324
  Transmission Date: 20050107
  Serious: Yes (Hospitalization)
  Sender: FDA-Public Use
  Company Number: 2004205296US

PATIENT
  Age: 70 Year
  Sex: Female
  Weight: 64.9 kg

DRUGS (5)
  1. CAMPTOSAR [Suspect]
     Indication: SMALL CELL LUNG CANCER STAGE UNSPECIFIED
     Dosage: 40 MG/M2, CYCLIC , IV
     Route: 042
     Dates: start: 20040210, end: 20040316
  2. CISPLATIN [Suspect]
     Indication: SMALL CELL LUNG CANCER STAGE UNSPECIFIED
     Dosage: 60 MG/M2, CYCLIC, IV
     Route: 042
     Dates: start: 20040210, end: 20040309
  3. RADIOTHERAPY (RADIOTHERAPY) [Suspect]
     Indication: SMALL CELL LUNG CANCER STAGE UNSPECIFIED
  4. PEPCID [Concomitant]
  5. CARAFATE [Concomitant]

REACTIONS (4)
  - DEHYDRATION [None]
  - DYSPHAGIA [None]
  - ODYNOPHAGIA [None]
  - OESOPHAGITIS [None]
